FAERS Safety Report 5911644-X (Version None)
Quarter: 2008Q4

REPORT INFORMATION
  Report Type: 
  Country: None (occurrence: None)
  Receive Date: 20081003
  Receipt Date: 20080919
  Transmission Date: 20090506
  Serious: Yes (Other)
  Sender: FDA-Public Use
  Company Number: 08-036A

PATIENT
  Sex: Female

DRUGS (6)
  1. LORTAB [Suspect]
     Indication: PAIN
     Dates: start: 19991013, end: 20010503
  2. PERCOCET [Concomitant]
  3. DURAGESIC-100 [Concomitant]
  4. GABITRIL [Concomitant]
  5. VIOXX [Concomitant]
  6. ZANAFLEX [Concomitant]

REACTIONS (5)
  - DENTAL CARIES [None]
  - INTESTINAL FUNCTIONAL DISORDER [None]
  - TOOTH ABSCESS [None]
  - TOOTH FRACTURE [None]
  - TOOTHACHE [None]
